FAERS Safety Report 18987343 (Version 1)
Quarter: 2021Q1

REPORT INFORMATION
  Report Type: Spontaneous
  Country: US (occurrence: US)
  Receive Date: 20210309
  Receipt Date: 20210309
  Transmission Date: 20210420
  Serious: Yes (Other)
  Sender: FDA-Public Use
  Company Number: None

PATIENT
  Age: 52 Year
  Sex: Female
  Weight: 72 kg

DRUGS (2)
  1. WELLBUTRIN [Concomitant]
     Active Substance: BUPROPION HYDROCHLORIDE
  2. ORIAHNN [Suspect]
     Active Substance: ELAGOLIX SODIUM\ESTRADIOL\NORETHINDRONE
     Indication: MENORRHAGIA
     Dosage: ?          QUANTITY:56 CAPSULE(S);?
     Route: 048
     Dates: start: 20210109, end: 20210225

REACTIONS (3)
  - Hypoaesthesia [None]
  - Peripheral swelling [None]
  - Hypertension [None]

NARRATIVE: CASE EVENT DATE: 20210225
